FAERS Safety Report 24029607 (Version 1)
Quarter: 2024Q2

REPORT INFORMATION
  Report Type: Spontaneous
  Country: GB (occurrence: GB)
  Receive Date: 20240628
  Receipt Date: 20240628
  Transmission Date: 20240716
  Serious: Yes (Hospitalization)
  Sender: FDA-Public Use
  Company Number: GB-BIOVITRUM-2024-GB-005493

PATIENT
  Age: 49 Year
  Sex: Female

DRUGS (4)
  1. KINERET [Suspect]
     Active Substance: ANAKINRA
     Indication: Still^s disease
     Dosage: KINERET IV 100MG BID FOR 8 DOSES
     Route: 042
     Dates: start: 20240318
  2. KINERET [Suspect]
     Active Substance: ANAKINRA
     Indication: Rash
     Dosage: AFTER 8 DAYS WAS SWITCHED TO SUBCUTANEOUS
     Route: 058
  3. OMEPRAZOLE [Concomitant]
     Active Substance: OMEPRAZOLE
     Indication: Product used for unknown indication
  4. FAMOTIDINE [Concomitant]
     Active Substance: FAMOTIDINE
     Indication: Product used for unknown indication

REACTIONS (6)
  - Still^s disease [Recovering/Resolving]
  - Off label use [Recovered/Resolved]
  - Hypersensitivity [Recovering/Resolving]
  - Serum ferritin increased [Recovering/Resolving]
  - Condition aggravated [Recovering/Resolving]
  - Rash [Recovering/Resolving]

NARRATIVE: CASE EVENT DATE: 20240318
